FAERS Safety Report 9276970 (Version 2)
Quarter: 2013Q2

REPORT INFORMATION
  Report Type: Spontaneous
  Country: DK (occurrence: DK)
  Receive Date: 20130507
  Receipt Date: 20130618
  Transmission Date: 20140414
  Serious: Yes (Other)
  Sender: FDA-Public Use
  Company Number: DK-PFIZER INC-2013139082

PATIENT
  Sex: Female

DRUGS (1)
  1. ZELDOX [Suspect]
     Dosage: UNK

REACTIONS (4)
  - Overdose [Recovered/Resolved]
  - Suicide attempt [Recovered/Resolved]
  - Panic disorder [Recovered/Resolved]
  - Anxiety [Recovered/Resolved]
